FAERS Safety Report 9319757 (Version 2)
Quarter: 2013Q2

REPORT INFORMATION
  Report Type: Spontaneous
  Country: US (occurrence: None)
  Receive Date: 20130311
  Receipt Date: 20130429
  Transmission Date: 20140414
  Serious: Yes (Hospitalization)
  Sender: FDA-Public Use
  Company Number: 35510

PATIENT
  Age: 43 Year
  Sex: Female
  Weight: 57.15 kg

DRUGS (8)
  1. GLASSIA [Suspect]
     Indication: ALPHA-1 ANTI-TRYPSIN DEFICIENCY
     Route: 042
     Dates: start: 2011, end: 201302
  2. ALBUTEROL [Concomitant]
  3. DELTASONE [Concomitant]
  4. DULERA [Concomitant]
  5. HABITROL [Concomitant]
  6. SYMBICORT [Concomitant]
  7. SYMBICORT [Concomitant]
  8. OXYGEN [Concomitant]

REACTIONS (8)
  - Chest pain [None]
  - Back pain [None]
  - Decreased appetite [None]
  - Weight increased [None]
  - Emphysema [None]
  - Chronic obstructive pulmonary disease [None]
  - Nasopharyngitis [None]
  - Pulmonary oedema [None]
